FAERS Safety Report 6089542-3 (Version None)
Quarter: 2009Q1

REPORT INFORMATION
  Report Type: 
  Country: None (occurrence: None)
  Receive Date: 20090224
  Receipt Date: 20090216
  Transmission Date: 20090719
  Serious: Yes (Hospitalization)
  Sender: FDA-Public Use
  Company Number: NL-JNJFOC-20081105523

PATIENT

DRUGS (1)
  1. REMICADE [Suspect]
     Indication: PSORIASIS
     Route: 042

REACTIONS (15)
  - AGGRESSION [None]
  - ANTIBODY TEST ABNORMAL [None]
  - DIARRHOEA [None]
  - DRUG INEFFECTIVE [None]
  - DYSPNOEA [None]
  - EAR PAIN [None]
  - FACE OEDEMA [None]
  - FATIGUE [None]
  - HYPERHIDROSIS [None]
  - INFUSION RELATED REACTION [None]
  - MYALGIA [None]
  - PAIN [None]
  - PNEUMONIA [None]
  - PSORIASIS [None]
  - RESTLESSNESS [None]
